FAERS Safety Report 4867296-3 (Version None)
Quarter: 2005Q4

REPORT INFORMATION
  Report Type: 
  Country: None (occurrence: None)
  Receive Date: 20051227
  Receipt Date: 20051227
  Transmission Date: 20060501
  Serious: Yes (Life-Threatening, Hospitalization)
  Sender: FDA-Public Use
  Company Number: None

PATIENT
  Sex: Female

DRUGS (3)
  1. HYDROMORPHONE HCL [Suspect]
     Indication: DISCOMFORT
     Dosage: 8 MG Q4H PRN PO
     Route: 048
     Dates: start: 20051018, end: 20051019
  2. HYDROMORPHONE HCL [Suspect]
     Indication: PAIN
     Dosage: 8 MG Q4H PRN PO
     Route: 048
     Dates: start: 20051018, end: 20051019
  3. FENTANYL [Suspect]
     Indication: PAIN
     Dosage: 50 MCG  Q72HR ID
     Route: 023
     Dates: start: 20051018, end: 20051019

REACTIONS (4)
  - CARDIO-RESPIRATORY ARREST [None]
  - DEPRESSED LEVEL OF CONSCIOUSNESS [None]
  - LETHARGY [None]
  - RESPIRATORY DEPRESSION [None]
